FAERS Safety Report 9540874 (Version 2)
Quarter: 2013Q3

REPORT INFORMATION
  Report Type: Spontaneous
  Country: IE (occurrence: IE)
  Receive Date: 20130920
  Receipt Date: 20130920
  Transmission Date: 20140515
  Serious: Yes (Death)
  Sender: FDA-Public Use
  Company Number: PHFR2013IE003019

PATIENT
  Age: 84 Year
  Sex: Female

DRUGS (14)
  1. CLOZARIL [Suspect]
     Indication: SCHIZOPHRENIA
     Dosage: 287.5 MG
     Route: 048
     Dates: start: 20120612
  2. CLOZARIL [Suspect]
     Dosage: 375 MG (150 MG MORNING AND 225 MG NIGHT)
     Route: 048
  3. CLOZARIL [Suspect]
     Dosage: 287.5 MG (50 MG MORNING AND 237.5 MG NIGHT)
     Route: 048
     Dates: start: 20121214
  4. MEMANTINE [Concomitant]
     Dosage: 20 MG
     Route: 048
  5. EPANUTIN [Concomitant]
     Indication: EPILEPSY
     Dosage: 100 MG
     Route: 048
  6. LOFEPRAMINE [Concomitant]
     Dosage: 210 MG (70 +140 MG)
     Route: 048
  7. SERTRALINE [Concomitant]
     Dosage: 200 MG
     Route: 048
  8. LOCERYL [Concomitant]
     Indication: FUNGAL INFECTION
     Dosage: UNK
     Route: 061
  9. ELTROXIN [Concomitant]
     Indication: HYPOTHYROIDISM
     Dosage: 100 MG
     Route: 048
  10. EZETROL [Concomitant]
     Dosage: 10 MG
     Route: 048
  11. OSTEOFOS [Concomitant]
     Dosage: UNK UKN, TID
  12. SERETIDE [Concomitant]
     Dosage: UNK UKN, BID
  13. COZAAR COMP [Concomitant]
     Dosage: UNK
     Route: 048
  14. SLOW K [Concomitant]
     Indication: HYPERTENSION

REACTIONS (2)
  - Myocardial infarction [Fatal]
  - Antipsychotic drug level below therapeutic [Unknown]
